FAERS Safety Report 10368805 (Version 1)
Quarter: 2014Q3

REPORT INFORMATION
  Report Type: Spontaneous
  Country: US (occurrence: US)
  Receive Date: 20140807
  Receipt Date: 20140807
  Transmission Date: 20150326
  Serious: Yes (Other)
  Sender: FDA-Public Use
  Company Number: US-ABBVIE-14P-163-1266700-00

PATIENT
  Age: 53 Year
  Sex: Male

DRUGS (2)
  1. ANDROGEL [Suspect]
     Active Substance: TESTOSTERONE
     Indication: FATIGUE
  2. ANDROGEL [Suspect]
     Active Substance: TESTOSTERONE
     Indication: HYPOGONADISM
     Dates: start: 20120209, end: 201301

REACTIONS (9)
  - Emotional distress [Unknown]
  - Physical disability [Unknown]
  - Injury [Unknown]
  - Acute coronary syndrome [Unknown]
  - Anxiety [Unknown]
  - Pain [Unknown]
  - Economic problem [Unknown]
  - Impaired work ability [Unknown]
  - Economic problem [Unknown]

NARRATIVE: CASE EVENT DATE: 20120803
